FAERS Safety Report 5162848-8 (Version None)
Quarter: 2006Q4

REPORT INFORMATION
  Report Type: 
  Country: None (occurrence: None)
  Receive Date: 20061201
  Receipt Date: 20020114
  Transmission Date: 20070319
  Serious: Yes (Hospitalization)
  Sender: FDA-Public Use
  Company Number: FR-GLAXOSMITHKLINE-B0132662C

PATIENT
  Age: 1 Day
  Sex: Male
  Weight: 3 kg

DRUGS (5)
  1. ZIDOVUDINE [Suspect]
     Indication: HUMAN IMMUNODEFICIENCY VIRUS TRANSMISSION
     Route: 048
     Dates: start: 19980307, end: 19980418
  2. LAMIVUDINE [Suspect]
     Indication: HUMAN IMMUNODEFICIENCY VIRUS TRANSMISSION
     Route: 048
     Dates: start: 19980307, end: 19980418
  3. ZIDOVUDINE [Suspect]
     Dosage: 300MG PER DAY
     Route: 048
     Dates: start: 19971229, end: 19980115
  4. DIDANOSINE [Suspect]
     Indication: HUMAN IMMUNODEFICIENCY VIRUS TRANSMISSION
     Dosage: 150MG TWICE PER DAY
     Route: 048
     Dates: start: 19980115
  5. STAVUDINE [Suspect]
     Indication: HUMAN IMMUNODEFICIENCY VIRUS TRANSMISSION
     Dosage: 40MG TWICE PER DAY
     Route: 048
     Dates: start: 19980115

REACTIONS (6)
  - ALBINISM [None]
  - BRAIN STEM SYNDROME [None]
  - DRUG EXPOSURE DURING PREGNANCY [None]
  - NERVOUS SYSTEM DISORDER [None]
  - NYSTAGMUS [None]
  - URINARY TRACT INFECTION BACTERIAL [None]
